FAERS Safety Report 16830040 (Version 4)
Quarter: 2020Q1

REPORT INFORMATION
  Report Type: Spontaneous
  Country: US (occurrence: US)
  Receive Date: 20190919
  Receipt Date: 20200107
  Transmission Date: 20200409
  Serious: No
  Sender: FDA-Public Use
  Company Number: US-BEH-2019106986

PATIENT
  Age: 59 Year
  Sex: Female

DRUGS (1)
  1. HIZENTRA [Suspect]
     Active Substance: HUMAN IMMUNOGLOBULIN G
     Indication: HYPOGAMMAGLOBULINAEMIA
     Dosage: 12 GRAM, QW
     Route: 058
     Dates: start: 20161119

REACTIONS (12)
  - Erythema [Unknown]
  - Swelling [Unknown]
  - Nausea [Unknown]
  - Infusion site pain [Recovering/Resolving]
  - Infusion site extravasation [Unknown]
  - Head discomfort [Unknown]
  - Bronchitis [Unknown]
  - Infusion site nodule [Recovering/Resolving]
  - Presyncope [Unknown]
  - Sinusitis [Unknown]
  - Pyrexia [Unknown]
  - Joint stiffness [Unknown]

NARRATIVE: CASE EVENT DATE: 20190910
